FAERS Safety Report 8537024 (Version 2)
Quarter: 2013Q1

REPORT INFORMATION
  Report Type: Spontaneous
  Country: US (occurrence: US)
  Receive Date: 20120430
  Receipt Date: 20130103
  Transmission Date: 20140127
  Serious: Yes (Hospitalization, Other)
  Sender: FDA-Public Use
  Company Number: US-BAYER-2012-041321

PATIENT
  Age: 30 Year
  Sex: Female
  Weight: 111.11 kg

DRUGS (8)
  1. OCELLA [Suspect]
     Indication: CONTRACEPTION
     Dosage: UNK
     Dates: start: 200902, end: 200907
  2. OCELLA [Suspect]
     Indication: ACNE
  3. YASMIN [Suspect]
     Indication: CONTRACEPTION
     Dosage: UNK
     Dates: start: 200509, end: 200605
  4. YASMIN [Suspect]
     Indication: ACNE
  5. YAZ [Suspect]
     Dosage: UNK
  6. MAALOX [Concomitant]
  7. OMEPRAZOLE [Concomitant]
  8. PHENERGAN [Concomitant]

REACTIONS (7)
  - Gallbladder injury [None]
  - Cholecystitis [None]
  - Injury [None]
  - Pain [None]
  - General physical health deterioration [None]
  - Emotional distress [None]
  - Abdominal pain [None]
